FAERS Safety Report 9044112 (Version 1)
Quarter: 2013Q1

REPORT INFORMATION
  Report Type: Spontaneous
  Country: US (occurrence: US)
  Receive Date: 20130130
  Receipt Date: 20130130
  Transmission Date: 20140127
  Serious: Yes (Other)
  Sender: FDA-Public Use
  Company Number: PHEH2012US013847

PATIENT
  Age: 33 Year
  Sex: Female
  Weight: 67.57 kg

DRUGS (16)
  1. GILENYA [Suspect]
     Indication: RELAPSING-REMITTING MULTIPLE SCLEROSIS
     Dosage: 0.5 MG, QD
     Route: 048
     Dates: start: 20120124
  2. BACLOFEN [Concomitant]
     Indication: MUSCLE SPASTICITY
     Dosage: 20 MG, DAILY
     Route: 048
  3. BUPROPION [Concomitant]
     Indication: DEPRESSION
     Dosage: 75 MG, BID
     Route: 048
  4. HYDROCHLOROTHIAZIDE [Concomitant]
     Indication: HYPERTENSION
     Dosage: 25 MG, HALF TABLET DAILY
     Route: 048
  5. TRETINOIN [Concomitant]
     Route: 061
  6. CHROMIUM [Concomitant]
  7. OMEGA-3 FATTY ACIDS [Concomitant]
  8. DOXYLAMINE [Concomitant]
  9. TURMERIC [Concomitant]
  10. COLACE [Concomitant]
  11. VITAMIN B [Concomitant]
  12. PENTOXIFYLLINE [Concomitant]
  13. CHIA SEED [Concomitant]
  14. CALCIUM [Concomitant]
  15. ACAI [Concomitant]
  16. OMEPRAZOLE [Concomitant]

REACTIONS (2)
  - Lymphadenopathy [Unknown]
  - Eosinophilia [Recovered/Resolved]
